FAERS Safety Report 23960570 (Version 4)
Quarter: 2025Q2

REPORT INFORMATION
  Report Type: Spontaneous
  Country: CO (occurrence: CO)
  Receive Date: 20240611
  Receipt Date: 20250627
  Transmission Date: 20250717
  Serious: Yes (Hospitalization, Other)
  Sender: SANDOZ
  Company Number: CO-002147023-NVSC2022CO224186

PATIENT
  Age: 67 Year
  Sex: Female
  Weight: 64 kg

DRUGS (7)
  1. LOSARTAN [Suspect]
     Active Substance: LOSARTAN
     Indication: Hypertension
     Dosage: UNK, Q12H, START DATE 1 YEAR
     Route: 048
  2. METFORMIN [Suspect]
     Active Substance: METFORMIN HYDROCHLORIDE
     Indication: Diabetes mellitus
     Dosage: UNK, Q12H, START DATE 4 YEARS
     Route: 048
  3. XOLAIR [Suspect]
     Active Substance: OMALIZUMAB
     Indication: Asthma
     Dosage: 150 MG, BIW
     Route: 058
  4. XOLAIR [Suspect]
     Active Substance: OMALIZUMAB
     Route: 065
  5. XOLAIR [Suspect]
     Active Substance: OMALIZUMAB
     Indication: Asthma
     Dosage: 300 MG, QMO
     Route: 058
  6. XOLAIR [Suspect]
     Active Substance: OMALIZUMAB
     Dosage: 300 MG, Q2W
     Route: 058
     Dates: start: 20160901, end: 20250206
  7. XOLAIR [Suspect]
     Active Substance: OMALIZUMAB
     Dosage: 300 MG, Q4W, EVERY 4 WEEKS
     Route: 058

REACTIONS (14)
  - Asthma [Unknown]
  - Influenza [Recovered/Resolved]
  - Choking [Recovered/Resolved]
  - Dyspnoea [Recovered/Resolved]
  - Pneumonia [Recovered/Resolved]
  - Chest discomfort [Recovered/Resolved]
  - Nasopharyngitis [Recovered/Resolved]
  - Asthmatic crisis [Unknown]
  - Pneumonia [Recovered/Resolved]
  - Influenza [Recovered/Resolved]
  - General physical health deterioration [Recovered/Resolved]
  - Hypertension [Unknown]
  - Product supply issue [Unknown]
  - Off label use [Unknown]

NARRATIVE: CASE EVENT DATE: 20220901
